FAERS Safety Report 9324871 (Version 1)
Quarter: 2013Q2

REPORT INFORMATION
  Report Type: Spontaneous
  Country: ES (occurrence: ES)
  Receive Date: 20130603
  Receipt Date: 20130603
  Transmission Date: 20140414
  Serious: Yes (Other)
  Sender: FDA-Public Use
  Company Number: ES-WATSON-2013-09384

PATIENT
  Age: 57 Year
  Sex: Male

DRUGS (14)
  1. MEPERIDINE HYDROCHLORIDE (WATSON LABORATORIES) [Suspect]
     Indication: ANALGESIC THERAPY
     Dosage: 15 MG/H PERFUSION
     Route: 042
  2. MEPERIDINE HYDROCHLORIDE (WATSON LABORATORIES) [Interacting]
     Indication: SEDATION
  3. FENTANYL CITRATE [Interacting]
     Indication: SEDATION
     Dosage: UNK
     Route: 065
  4. FENTANYL CITRATE [Interacting]
     Indication: ANALGESIC THERAPY
  5. LINEZOLID [Interacting]
     Indication: ENTEROCOCCAL INFECTION
     Dosage: 600 MG/ 12 H
     Route: 042
  6. LINEZOLID [Interacting]
     Indication: EMPYEMA
  7. ENOXAPARIN [Concomitant]
     Indication: PRODUCT USED FOR UNKNOWN INDICATION
     Dosage: 40 MG, Q24H
     Route: 065
  8. PROPOFOL [Concomitant]
     Indication: PRODUCT USED FOR UNKNOWN INDICATION
     Dosage: 300 MG, Q1H
     Route: 065
  9. MEROPENEM [Concomitant]
     Indication: PRODUCT USED FOR UNKNOWN INDICATION
     Dosage: 1 G, Q8H
  10. AMIKACIN [Concomitant]
     Indication: PRODUCT USED FOR UNKNOWN INDICATION
     Dosage: 1.2 G, Q24H
     Route: 065
  11. ANIDULAFUNGIN [Concomitant]
     Indication: PRODUCT USED FOR UNKNOWN INDICATION
     Dosage: 100 MG, Q24H
     Route: 065
  12. ACTRAPID                           /00646001/ [Concomitant]
     Indication: PRODUCT USED FOR UNKNOWN INDICATION
     Dosage: 50 U PER DAY
     Route: 065
  13. MIDAZOLAM [Concomitant]
     Indication: PRODUCT USED FOR UNKNOWN INDICATION
     Dosage: 7 MG, UNKNOWN
     Route: 065
  14. MIDAZOLAM [Concomitant]
     Dosage: 10 MG, Q1H, CONTINUOUS PERFUSION
     Route: 042

REACTIONS (5)
  - Serotonin syndrome [Recovering/Resolving]
  - Drug interaction [Recovered/Resolved]
  - Hypotension [None]
  - Metabolic acidosis [None]
  - Candida test positive [None]
